FAERS Safety Report 4392132-1 (Version None)
Quarter: 2004Q3

REPORT INFORMATION
  Report Type: 
  Country: None (occurrence: None)
  Receive Date: 20040702
  Receipt Date: 20040622
  Transmission Date: 20050211
  Serious: Yes (Life-Threatening, Hospitalization)
  Sender: FDA-Public Use
  Company Number: HQWYE607223JUN04

PATIENT
  Sex: 0

DRUGS (2)
  1. RAPAMUNE [Suspect]
     Indication: RENAL TRANSPLANT
     Dosage: ORAL
     Route: 048
  2. TACROLIMUS (TACROLIMUS) [Concomitant]

REACTIONS (2)
  - HAEMODYNAMIC INSTABILITY [None]
  - PERICARDIAL EFFUSION [None]
